FAERS Safety Report 5209058-3 (Version None)
Quarter: 2007Q1

REPORT INFORMATION
  Report Type: 
  Country: None (occurrence: None)
  Receive Date: 20070111
  Receipt Date: 20070102
  Transmission Date: 20070707
  Serious: Yes (Life-Threatening, Hospitalization)
  Sender: FDA-Public Use
  Company Number: 2007AL000071

PATIENT
  Age: 12 Year
  Sex: Male

DRUGS (3)
  1. DICLOFENAC SODIUM [Suspect]
     Indication: PAIN
     Dosage: PO
     Route: 048
  2. PARACETAMOL [Concomitant]
  3. MORPHINE [Concomitant]

REACTIONS (2)
  - DRUG INEFFECTIVE [None]
  - MEGACOLON [None]
